FAERS Safety Report 8198896-3 (Version None)
Quarter: 2012Q1

REPORT INFORMATION
  Report Type: 
  Country: None (occurrence: None)
  Receive Date: 20120309
  Receipt Date: 20120306
  Transmission Date: 20120608
  Serious: Yes (Hospitalization)
  Sender: FDA-Public Use
  Company Number: JP-EISAI INC-E2020-10325-SPO-JP

PATIENT
  Age: 80 Year
  Sex: Male
  Weight: 60 kg

DRUGS (7)
  1. LANSOPRAZOLE [Concomitant]
     Route: 048
     Dates: start: 20100101
  2. LASIX [Concomitant]
     Dosage: 40 MG AND 20 MG DAILY
     Route: 048
     Dates: start: 20100101
  3. EPLERENONE [Concomitant]
     Route: 048
     Dates: start: 20100101
  4. ENALAPRIL MALEATE [Concomitant]
     Route: 048
     Dates: start: 20100101
  5. ARICEPT [Suspect]
     Indication: DEMENTIA ALZHEIMER'S TYPE
     Route: 048
     Dates: start: 20100101, end: 20120207
  6. TETRAMIDE [Concomitant]
     Route: 048
     Dates: start: 20100101
  7. MAGNESIUM SULFATE [Concomitant]
     Dosage: 250 MG
     Route: 048
     Dates: start: 20100101

REACTIONS (2)
  - HYPOTHERMIA [None]
  - HYPERHIDROSIS [None]
